FAERS Safety Report 19411264 (Version 2)
Quarter: 2022Q3

REPORT INFORMATION
  Report Type: Spontaneous
  Country: FR (occurrence: FR)
  Receive Date: 20210614
  Receipt Date: 20220809
  Transmission Date: 20221027
  Serious: Yes (Congenital Anomaly, Other)
  Sender: FDA-Public Use
  Company Number: FR-ABBVIE-21K-056-3944504-00

PATIENT
  Sex: Male

DRUGS (1)
  1. VALPROATE SODIUM [Suspect]
     Active Substance: VALPROATE SODIUM
     Indication: Maternal exposure timing unspecified
     Route: 064

REACTIONS (13)
  - Cryptorchism [Unknown]
  - Learning disorder [Unknown]
  - Loss of consciousness [Unknown]
  - Sleep disorder [Unknown]
  - Dysmorphism [Unknown]
  - Ear disorder [Unknown]
  - Oropharyngeal discomfort [Unknown]
  - Nasal disorder [Unknown]
  - Foetal exposure during pregnancy [Unknown]
  - Gastrooesophageal reflux disease [Unknown]
  - Behaviour disorder [Unknown]
  - Agitation [Unknown]
  - Disturbance in attention [Unknown]

NARRATIVE: CASE EVENT DATE: 20030311
